FAERS Safety Report 18879607 (Version 1)
Quarter: 2021Q1

REPORT INFORMATION
  Report Type: Spontaneous
  Country: AU (occurrence: AU)
  Receive Date: 20210211
  Receipt Date: 20210211
  Transmission Date: 20210420
  Serious: Yes (Other)
  Sender: FDA-Public Use
  Company Number: AU-SUN PHARMACEUTICAL INDUSTRIES LTD-2021RR-280602

PATIENT
  Age: 53 Year

DRUGS (3)
  1. CYPROTERONE ACETATE [Suspect]
     Active Substance: CYPROTERONE ACETATE
     Indication: TRANSGENDER HORMONAL THERAPY
     Dosage: 50 MILLIGRAM, DAILY
     Route: 065
  2. ESTRADIOL. [Suspect]
     Active Substance: ESTRADIOL
     Indication: TRANSGENDER HORMONAL THERAPY
     Dosage: 50 MICROGRAM, 2/WEEK
     Route: 061
  3. CYPROTERONE/ETHINYLESTRADIOL [Suspect]
     Active Substance: CYPROTERONE ACETATE\ETHINYL ESTRADIOL
     Indication: TRANSGENDER HORMONAL THERAPY
     Dosage: UNK
     Route: 065

REACTIONS (2)
  - Prolactin-producing pituitary tumour [Recovering/Resolving]
  - Hyperprolactinaemia [Recovering/Resolving]
